FAERS Safety Report 12907329 (Version 1)
Quarter: 2016Q4

REPORT INFORMATION
  Report Type: Spontaneous
  Country: US (occurrence: US)
  Receive Date: 20161103
  Receipt Date: 20161103
  Transmission Date: 20170207
  Serious: No
  Sender: FDA-Public Use
  Company Number: US-UCBSA-2016029033

PATIENT
  Sex: Female

DRUGS (2)
  1. BRIVIACT [Suspect]
     Active Substance: BRIVARACETAM
     Indication: SEIZURE
     Dosage: UNKNOWN DOSE
  2. BRIVIACT [Suspect]
     Active Substance: BRIVARACETAM
     Dosage: TITRATED TO 25MG TWICE DAILY

REACTIONS (1)
  - No adverse event [Unknown]
